FAERS Safety Report 18924219 (Version 3)
Quarter: 2021Q1

REPORT INFORMATION
  Report Type: Spontaneous
  Country: PT (occurrence: PT)
  Receive Date: 20210222
  Receipt Date: 20210304
  Transmission Date: 20210420
  Serious: Yes (Death, Other)
  Sender: FDA-Public Use
  Company Number: PT-GILEAD-2021-0518116

PATIENT
  Age: 74 Year
  Sex: Male

DRUGS (18)
  1. VEKLURY [Suspect]
     Active Substance: REMDESIVIR
     Indication: COVID-19
     Dosage: UNK
     Route: 065
     Dates: start: 202102, end: 202102
  2. ALLOPURINOL. [Concomitant]
     Active Substance: ALLOPURINOL
  3. ASPIRIN [ACETYLSALICYLIC ACID] [Concomitant]
     Active Substance: ASPIRIN
  4. IVABRADINE [Concomitant]
     Active Substance: IVABRADINE
  5. MONOKET [Concomitant]
     Active Substance: ISOSORBIDE MONONITRATE
  6. INSULIN [INSULIN HUMAN] [Concomitant]
  7. RANEXA [Concomitant]
     Active Substance: RANOLAZINE
  8. SINVASTATINA [Concomitant]
     Active Substance: SIMVASTATIN
  9. TRAJENTA [Concomitant]
     Active Substance: LINAGLIPTIN
  10. PANTOPRAZOLE [Concomitant]
     Active Substance: PANTOPRAZOLE
  11. HYGROTON [Concomitant]
     Active Substance: CHLORTHALIDONE
  12. METFORMINE [METFORMIN] [Concomitant]
     Active Substance: METFORMIN HYDROCHLORIDE
  13. PERINDOPRIL [Concomitant]
     Active Substance: PERINDOPRIL
  14. BRILIQUE [Concomitant]
     Active Substance: TICAGRELOR
  15. GLIMEPIRIDE. [Concomitant]
     Active Substance: GLIMEPIRIDE
  16. LOPRESOR [METOPROLOL TARTRATE] [Concomitant]
     Active Substance: METOPROLOL TARTRATE
  17. JARDIANCE [Concomitant]
     Active Substance: EMPAGLIFLOZIN
  18. NITROMINT [Concomitant]
     Active Substance: NITROGLYCERIN

REACTIONS (1)
  - Cardiac failure [Fatal]
